FAERS Safety Report 6417458-9 (Version None)
Quarter: 2009Q4

REPORT INFORMATION
  Report Type: 
  Country: None (occurrence: None)
  Receive Date: 20091028
  Receipt Date: 20091009
  Transmission Date: 20100525
  Serious: Yes (Other)
  Sender: FDA-Public Use
  Company Number: GB-PURDUE-GBR-2009-0005668

PATIENT
  Age: 41 Year
  Sex: Female

DRUGS (12)
  1. OXYNORM CAPSULES 10 MG [Suspect]
     Indication: PAIN
     Dosage: 10 MG, UNK
     Route: 048
     Dates: start: 20090904, end: 20090904
  2. TARGINACT [Concomitant]
     Dosage: 15 MG, BID
     Route: 065
  3. TRAMADOL HCL [Concomitant]
     Dosage: 200 MG, BID
     Route: 065
  4. CO-CODAMOL [Concomitant]
     Dosage: 2 DF, QID
     Route: 065
  5. DIAZEPAM [Concomitant]
     Route: 065
  6. FOLIC ACID [Concomitant]
     Dosage: 5 MG, DAILY
     Route: 065
  7. HEPARIN [Concomitant]
     Dosage: UNK
     Route: 065
     Dates: start: 20090831
  8. HYDROXOCOBALAMIN [Concomitant]
     Dosage: 1 MG, 1 / 3 MONTHS
     Route: 065
  9. OMEPRAZOLE [Concomitant]
     Dosage: 20 MG, DAILY
     Route: 065
  10. MEPERIDINE HCL [Concomitant]
     Dosage: UNK
     Route: 030
     Dates: start: 20090828
  11. TEICOPLANIN [Concomitant]
     Indication: SPINAL CORD INFECTION
     Dosage: UNK
     Dates: start: 20090825
  12. WARFARIN SODIUM [Concomitant]
     Route: 065

REACTIONS (2)
  - BLISTER [None]
  - ERYTHEMA [None]
